FAERS Safety Report 25599805 (Version 2)
Quarter: 2025Q3

REPORT INFORMATION
  Report Type: Spontaneous
  Country: US (occurrence: US)
  Receive Date: 20250724
  Receipt Date: 20250812
  Transmission Date: 20251021
  Serious: Yes (Other)
  Sender: TEVA
  Company Number: US-TEVA-VS-3352355

PATIENT
  Age: 82 Year
  Sex: Female

DRUGS (4)
  1. EFINACONAZOLE [Suspect]
     Active Substance: EFINACONAZOLE
     Indication: Onychomycosis
     Route: 061
  2. ECONAZOLE [Concomitant]
     Active Substance: ECONAZOLE
     Indication: Tinea pedis
     Route: 065
  3. TERBINAFINE [Suspect]
     Active Substance: TERBINAFINE
     Indication: Onychomycosis
     Route: 048
  4. DEVICE [Suspect]
     Active Substance: DEVICE

REACTIONS (3)
  - Drug-induced liver injury [Recovered/Resolved]
  - Treatment failure [Unknown]
  - Mixed liver injury [Recovered/Resolved]
